FAERS Safety Report 6372178-4 (Version None)
Quarter: 2009Q3

REPORT INFORMATION
  Report Type: 
  Country: None (occurrence: None)
  Receive Date: 20090917
  Receipt Date: 20090904
  Transmission Date: 20100115
  Serious: Yes (Death, Other)
  Sender: FDA-Public Use
  Company Number: ADR17642009

PATIENT
  Age: 28 Year
  Sex: Female

DRUGS (9)
  1. CITALOPRAM HYDROBROMIDE [Suspect]
     Indication: DEPRESSION
     Dosage: 30MG (1/1 DAYS) ORAL
     Route: 048
  2. CLOZARIL [Concomitant]
  3. HALOPERIDOL [Concomitant]
  4. LITHIUM [Concomitant]
  5. DIAZEPAM [Concomitant]
  6. LACTULOSE [Concomitant]
  7. LEVOTHYROXINE SODIUM [Concomitant]
  8. PIRENZEPINE [Concomitant]
  9. SENNA [Concomitant]

REACTIONS (5)
  - ALCOHOL USE [None]
  - LEFT VENTRICULAR HYPERTROPHY [None]
  - MYOCARDIAL INFARCTION [None]
  - NEUTROPHIL COUNT INCREASED [None]
  - WHITE BLOOD CELL COUNT INCREASED [None]
